FAERS Safety Report 16287937 (Version 1)
Quarter: 2019Q2

REPORT INFORMATION
  Report Type: Spontaneous
  Country: CA (occurrence: CA)
  Receive Date: 20190508
  Receipt Date: 20190508
  Transmission Date: 20190711
  Serious: Yes (Other)
  Sender: FDA-Public Use
  Company Number: CA-MYLANLABS-2019M1044475

PATIENT
  Age: 37 Year
  Sex: Female

DRUGS (9)
  1. BENADRYL [Concomitant]
     Active Substance: DIPHENHYDRAMINE HYDROCHLORIDE
  2. REACTINE                           /00884302/ [Concomitant]
     Active Substance: CETIRIZINE HYDROCHLORIDE
  3. ALEMTUZUMAB [Suspect]
     Active Substance: ALEMTUZUMAB
     Indication: RELAPSING-REMITTING MULTIPLE SCLEROSIS
     Dosage: 12 MILLIGRAM, QD
     Route: 041
  4. RANITIDINE. [Concomitant]
     Active Substance: RANITIDINE
  5. ESCITALOPRAM OXALATE. [Concomitant]
     Active Substance: ESCITALOPRAM OXALATE
  6. GRAVOL [Concomitant]
     Active Substance: DIMENHYDRINATE
  7. ACICLOVIR [Suspect]
     Active Substance: ACYCLOVIR
     Indication: ANTIVIRAL PROPHYLAXIS
     Dosage: 200 MILLIGRAM, BID
     Route: 048
  8. QUETIAPINE FUMARATE. [Concomitant]
     Active Substance: QUETIAPINE FUMARATE
  9. METHYLPREDNISOLONE. [Concomitant]
     Active Substance: METHYLPREDNISOLONE

REACTIONS (24)
  - Dyspepsia [Unknown]
  - Menstrual disorder [Unknown]
  - Pyrexia [Unknown]
  - Chest discomfort [Unknown]
  - Tongue disorder [Unknown]
  - Nausea [Unknown]
  - Feeling hot [Unknown]
  - Neck pain [Unknown]
  - Tachycardia [Unknown]
  - Candida infection [Unknown]
  - Feeling cold [Unknown]
  - Respiratory tract congestion [Unknown]
  - Vomiting [Unknown]
  - Dyspnoea exertional [Unknown]
  - Malaise [Unknown]
  - Productive cough [Unknown]
  - Vaginal discharge [Unknown]
  - Cough [Unknown]
  - Wheezing [Unknown]
  - Chills [Unknown]
  - Fungal infection [Unknown]
  - Lower respiratory tract infection [Unknown]
  - Nasopharyngitis [Unknown]
  - Dyspnoea [Unknown]
